FAERS Safety Report 23508719 (Version 2)
Quarter: 2024Q1

REPORT INFORMATION
  Report Type: Spontaneous
  Country: US (occurrence: US)
  Receive Date: 20240209
  Receipt Date: 20240305
  Transmission Date: 20240410
  Serious: No
  Sender: FDA-Public Use
  Company Number: US-BIOGEN-2024BI01243720

PATIENT
  Sex: Female

DRUGS (2)
  1. SKYCLARYS [Suspect]
     Active Substance: OMAVELOXOLONE
     Indication: Friedreich^s ataxia
     Route: 050
     Dates: start: 20230706
  2. SKYCLARYS [Suspect]
     Active Substance: OMAVELOXOLONE
     Route: 050
     Dates: start: 20230706

REACTIONS (6)
  - Gait disturbance [Unknown]
  - Hyporeflexia [Unknown]
  - Hepatic enzyme increased [Unknown]
  - Headache [Unknown]
  - Migraine [Unknown]
  - Decreased gait velocity [Unknown]

NARRATIVE: CASE EVENT DATE: 20230101
